FAERS Safety Report 11453809 (Version 1)
Quarter: 2015Q3

REPORT INFORMATION
  Report Type: Spontaneous
  Country: US (occurrence: US)
  Receive Date: 20150903
  Receipt Date: 20150903
  Transmission Date: 20151125
  Serious: Yes (Hospitalization)
  Sender: FDA-Public Use
  Company Number: US-BIOGENIDEC-2015BI118435

PATIENT
  Age: 24 Year
  Sex: Female

DRUGS (1)
  1. AVONEX [Suspect]
     Active Substance: INTERFERON BETA-1A
     Indication: PRODUCT USED FOR UNKNOWN INDICATION
     Route: 030
     Dates: end: 2014

REACTIONS (2)
  - Abasia [Recovered/Resolved]
  - Musculoskeletal disorder [Recovered/Resolved]

NARRATIVE: CASE EVENT DATE: 201401
